FAERS Safety Report 7160475-4 (Version None)
Quarter: 2010Q4

REPORT INFORMATION
  Report Type: 
  Country: None (occurrence: None)
  Receive Date: 20101214
  Receipt Date: 20091125
  Transmission Date: 20110411
  Serious: No
  Sender: FDA-Public Use
  Company Number: US-AMGEN-KDL377063

PATIENT

DRUGS (3)
  1. ENBREL [Suspect]
     Indication: RHEUMATOID ARTHRITIS
     Dosage: 50 MG, QWK
     Route: 058
     Dates: start: 20000601
  2. LEFLUNOMIDE [Concomitant]
     Dosage: 20 MG, QD
     Route: 048
  3. METHOTREXATE [Concomitant]

REACTIONS (7)
  - ACNE [None]
  - DYSSTASIA [None]
  - FURUNCLE [None]
  - INJECTION SITE HAEMATOMA [None]
  - NODULE ON EXTREMITY [None]
  - PAIN [None]
  - STAPHYLOCOCCAL INFECTION [None]
